FAERS Safety Report 10265699 (Version 1)
Quarter: 2014Q2

REPORT INFORMATION
  Report Type: Spontaneous
  Country: US (occurrence: US)
  Receive Date: 20140627
  Receipt Date: 20140627
  Transmission Date: 20141212
  Serious: Yes (Other)
  Sender: FDA-Public Use
  Company Number: US-ABBVIE-14P-163-1250784-00

PATIENT
  Age: 55 Year
  Sex: Male

DRUGS (2)
  1. HUMIRA [Suspect]
     Indication: CROHN^S DISEASE
     Dates: end: 201405
  2. PENTASA [Suspect]
     Indication: PRODUCT USED FOR UNKNOWN INDICATION
     Dates: start: 2014

REACTIONS (5)
  - Carotid artery thrombosis [Unknown]
  - Hemiparesis [Unknown]
  - VIIth nerve paralysis [Unknown]
  - Embolic stroke [Recovered/Resolved]
  - Oral infection [Recovered/Resolved]
